FAERS Safety Report 17573362 (Version 1)
Quarter: 2020Q1

REPORT INFORMATION
  Report Type: Spontaneous
  Country: CN (occurrence: CN)
  Receive Date: 20200323
  Receipt Date: 20200323
  Transmission Date: 20200409
  Serious: Yes (Other)
  Sender: FDA-Public Use
  Company Number: CN-PFIZER INC-2020121358

PATIENT
  Age: 56 Year
  Sex: Male

DRUGS (1)
  1. PIPERACILLIN/TAZOBACTAM [Suspect]
     Active Substance: PIPERACILLIN SODIUM\TAZOBACTAM SODIUM
     Indication: ANTI-INFECTIVE THERAPY
     Dosage: UNK

REACTIONS (3)
  - Cardiorenal syndrome [Unknown]
  - Haemoglobin decreased [Unknown]
  - Gastric occult blood positive [Unknown]

NARRATIVE: CASE EVENT DATE: 20200307
